FAERS Safety Report 8143428-9 (Version None)
Quarter: 2012Q1

REPORT INFORMATION
  Report Type: 
  Country: None (occurrence: None)
  Receive Date: 20120217
  Receipt Date: 20120208
  Transmission Date: 20120608
  Serious: Yes (Other)
  Sender: FDA-Public Use
  Company Number: US-JNJFOC-20120207624

PATIENT
  Sex: Male

DRUGS (3)
  1. HALDOL [Suspect]
     Indication: SCHIZOPHRENIA
     Route: 030
  2. HALDOL [Suspect]
     Route: 030
  3. HALDOL [Suspect]
     Route: 030
     Dates: end: 20120101

REACTIONS (8)
  - HERNIA [None]
  - DEPRESSION [None]
  - WEIGHT DECREASED [None]
  - DRY EYE [None]
  - PSYCHOTIC DISORDER [None]
  - CATARACT [None]
  - MUSCLE SPASMS [None]
  - ARTHRALGIA [None]
